FAERS Safety Report 11433915 (Version 1)
Quarter: 2015Q3

REPORT INFORMATION
  Report Type: Report from Study
  Country: AR (occurrence: AR)
  Receive Date: 20150831
  Receipt Date: 20150831
  Transmission Date: 20151125
  Serious: Yes (Disabling)
  Sender: FDA-Public Use
  Company Number: AR-EMD SERONO-8039718

PATIENT
  Sex: Female

DRUGS (1)
  1. SAIZEN [Suspect]
     Active Substance: SOMATROPIN
     Indication: GROWTH HORMONE DEFICIENCY
     Dates: start: 20140808, end: 20150118

REACTIONS (3)
  - Bedridden [Recovering/Resolving]
  - Bone pain [Recovering/Resolving]
  - Hypokinesia [Recovering/Resolving]
